FAERS Safety Report 5637701-3 (Version None)
Quarter: 2008Q1

REPORT INFORMATION
  Report Type: 
  Country: None (occurrence: None)
  Receive Date: 20080220
  Receipt Date: 20080207
  Transmission Date: 20080703
  Serious: Yes (Death)
  Sender: FDA-Public Use
  Company Number: US022384

PATIENT
  Age: 52 Year
  Sex: Male

DRUGS (6)
  1. PROVIGIL [Suspect]
     Indication: SLEEP APNOEA SYNDROME
     Dosage: 100 MG SAMPLES DISPENSED QD ORAL
     Route: 048
     Dates: start: 20071226, end: 20080115
  2. PROVIGIL [Suspect]
     Indication: SLEEP APNOEA SYNDROME
     Dosage: 200 MG 10 SAMPLE TABLETS DISPENSED QD ORAL
     Route: 048
     Dates: start: 20080115, end: 20080119
  3. CYMBALTA [Concomitant]
  4. AMBIEN [Concomitant]
  5. HYDROCODONE BITARTRATE [Concomitant]
  6. KLONOPIN [Concomitant]

REACTIONS (1)
  - DEATH [None]
